FAERS Safety Report 9506217 (Version 1)
Quarter: 2013Q1

REPORT INFORMATION
  Report Type: Spontaneous
  Country: US (occurrence: None)
  Receive Date: 20130301
  Receipt Date: 20130301
  Transmission Date: 20140127
  Serious: Yes (Hospitalization)
  Sender: FDA-Public Use
  Company Number: RB-45707-2012

PATIENT
  Age: 47 Year
  Sex: Female

DRUGS (4)
  1. SUBOXONE [Suspect]
     Indication: DRUG DEPENDENCE
     Dates: start: 201204
  2. SUBUTEX [Suspect]
     Indication: PRODUCT USED FOR UNKNOWN INDICATION
  3. GABAPENTIN [Concomitant]
  4. BENZODIAZEPINE DERIVATIVES [Suspect]

REACTIONS (4)
  - Fatigue [None]
  - Therapeutic response decreased [None]
  - Drug withdrawal syndrome [None]
  - Asthenia [None]
